FAERS Safety Report 14154599 (Version 1)
Quarter: 2017Q4

REPORT INFORMATION
  Report Type: Spontaneous
  Country: DE (occurrence: DE)
  Receive Date: 20171102
  Receipt Date: 20171102
  Transmission Date: 20180321
  Serious: Yes (Hospitalization)
  Sender: FDA-Public Use
  Company Number: DE-TEVA-821052GER

PATIENT
  Age: 54 Year
  Sex: Female

DRUGS (10)
  1. BUPROPION. [Suspect]
     Active Substance: BUPROPION
     Dosage: 300MG
     Route: 065
  2. DOXEPIN [Suspect]
     Active Substance: DOXEPIN
     Indication: MAJOR DEPRESSION
     Dosage: 100MG
     Route: 065
  3. DOXEPIN [Suspect]
     Active Substance: DOXEPIN
     Dosage: 200MG
     Route: 065
  4. SERTRALINE [Suspect]
     Active Substance: SERTRALINE HYDROCHLORIDE
     Dosage: 100MG
     Route: 065
  5. MELPERONE [Concomitant]
     Active Substance: MELPERONE
     Dosage: 100MG
     Route: 065
  6. SERTRALINE [Suspect]
     Active Substance: SERTRALINE HYDROCHLORIDE
     Indication: MAJOR DEPRESSION
     Dosage: 50MG
     Route: 065
  7. MELPERONE [Concomitant]
     Active Substance: MELPERONE
     Indication: MAJOR DEPRESSION
     Dosage: 50MG
     Route: 065
  8. SERTRALINE [Suspect]
     Active Substance: SERTRALINE HYDROCHLORIDE
     Dosage: 150MG
     Route: 065
  9. BUPROPION. [Suspect]
     Active Substance: BUPROPION
     Indication: MAJOR DEPRESSION
     Dosage: 150MG
     Route: 065
  10. RAMIPRIL. [Concomitant]
     Active Substance: RAMIPRIL
     Indication: HYPERTENSION
     Route: 065

REACTIONS (2)
  - Sleep-related eating disorder [Recovering/Resolving]
  - Weight increased [Recovering/Resolving]
